FAERS Safety Report 21295837 (Version 2)
Quarter: 2022Q4

REPORT INFORMATION
  Report Type: Spontaneous
  Country: PT (occurrence: PT)
  Receive Date: 20220906
  Receipt Date: 20221109
  Transmission Date: 20230112
  Serious: Yes (Death, Other)
  Sender: FDA-Public Use
  Company Number: None

PATIENT
  Age: 35 Year
  Sex: Male
  Weight: 71 kg

DRUGS (12)
  1. LEVETIRACETAM [Suspect]
     Active Substance: LEVETIRACETAM
     Indication: Seizure
     Route: 042
     Dates: start: 20220619, end: 20220729
  2. CEFTAZIDIME [Concomitant]
     Active Substance: CEFTAZIDIME
     Indication: Product used for unknown indication
     Dosage: UNKNOWN
     Route: 065
  3. LINEZOLID [Concomitant]
     Active Substance: LINEZOLID
     Indication: Product used for unknown indication
     Dosage: UNKNOWN
     Route: 065
  4. PIPERACILIN;TAZOBACTAM [Concomitant]
     Indication: Product used for unknown indication
     Dosage: UNKNOWN
     Route: 065
  5. VALPROIC ACID [Concomitant]
     Active Substance: VALPROIC ACID
     Indication: Product used for unknown indication
     Dosage: UNKNOWN
     Route: 065
  6. LACOSAMIDE [Concomitant]
     Active Substance: LACOSAMIDE
     Indication: Product used for unknown indication
     Dosage: LACOSAMIDA 10 MG/M
     Route: 065
  7. PHENYTOIN [Concomitant]
     Active Substance: PHENYTOIN
     Indication: Product used for unknown indication
     Dosage: PHENYTOIN 200 MG/5 M
     Route: 065
  8. FLUCLOXACILLIN [Concomitant]
     Active Substance: FLUCLOXACILLIN
     Indication: Product used for unknown indication
     Dosage: UNKNOWN
     Route: 065
  9. CEFTRIAXONE [Concomitant]
     Active Substance: CEFTRIAXONE
     Indication: Product used for unknown indication
     Dosage: UNKNOWN
     Route: 065
  10. PHENOBARBITAL [Concomitant]
     Active Substance: PHENOBARBITAL
     Indication: Product used for unknown indication
     Dosage: PHENOBARBITAL 200 MG/2 M
     Route: 065
  11. MEROPENEM [Concomitant]
     Active Substance: MEROPENEM
     Indication: Product used for unknown indication
     Dosage: UNKNOWN
     Route: 065
  12. PERAMPANEL [Concomitant]
     Active Substance: PERAMPANEL
     Indication: Product used for unknown indication
     Dosage: UNKNOWN
     Route: 065

REACTIONS (3)
  - Toxic skin eruption [Fatal]
  - Drug reaction with eosinophilia and systemic symptoms [Fatal]
  - Infection reactivation [Fatal]

NARRATIVE: CASE EVENT DATE: 20220717
